FAERS Safety Report 17079255 (Version 3)
Quarter: 2020Q1

REPORT INFORMATION
  Report Type: Other
  Country: US (occurrence: US)
  Receive Date: 20191127
  Receipt Date: 20200211
  Transmission Date: 20200409
  Serious: Yes (Hospitalization, Other)
  Sender: FDA-Public Use
  Company Number: US-AJANTA PHARMA USA INC.-2077240

PATIENT
  Age: 73 Year
  Sex: Male
  Weight: 90.91 kg

DRUGS (22)
  1. RYTARY [Concomitant]
     Active Substance: CARBIDOPA\LEVODOPA
  2. LYRICA [Concomitant]
     Active Substance: PREGABALIN
  3. PROTONIX [Concomitant]
     Active Substance: PANTOPRAZOLE SODIUM
  4. SIMVASTATIN. [Concomitant]
     Active Substance: SIMVASTATIN
  5. FOLIC ACID. [Concomitant]
     Active Substance: FOLIC ACID
  6. MELATONIN [Concomitant]
     Active Substance: MELATONIN
  7. ZANAFLEX [Concomitant]
     Active Substance: TIZANIDINE HYDROCHLORIDE
     Dates: start: 20190823, end: 20190922
  8. METOPROLOL. [Concomitant]
     Active Substance: METOPROLOL
     Dates: start: 2019, end: 2019
  9. VITAMIN [Concomitant]
     Active Substance: VITAMINS
  10. SINEMET [Concomitant]
     Active Substance: CARBIDOPA\LEVODOPA
  11. RANOLAZINE (ANDA 210054) [Suspect]
     Active Substance: RANOLAZINE
     Indication: CHEST PAIN
     Route: 048
     Dates: start: 20190821, end: 20190829
  12. CLONAZEPAM. [Concomitant]
     Active Substance: CLONAZEPAM
  13. IRON [Concomitant]
     Active Substance: IRON
  14. CYANOCOBALAMIN. [Concomitant]
     Active Substance: CYANOCOBALAMIN
  15. GOCOVRI [Suspect]
     Active Substance: AMANTADINE
     Route: 048
  16. VITAMIN B12 [Concomitant]
     Active Substance: CYANOCOBALAMIN
  17. COENZYME Q10 [Concomitant]
     Active Substance: UBIDECARENONE
  18. VITAMIN D [Concomitant]
     Active Substance: VITAMIN D NOS
  19. N-ACETYL CYSTEINE [Concomitant]
     Active Substance: ACETYLCYSTEINE
  20. ASPIRIN. [Concomitant]
     Active Substance: ASPIRIN
  21. TYLENOL [Concomitant]
     Active Substance: ACETAMINOPHEN
  22. COLACE [Concomitant]
     Active Substance: DOCUSATE SODIUM

REACTIONS (9)
  - Fall [Recovered/Resolved]
  - Hypertension [Unknown]
  - Back pain [Recovering/Resolving]
  - Parkinson^s disease [Unknown]
  - Skin laceration [Recovered/Resolved]
  - Syncope [Recovered/Resolved]
  - Arthralgia [Recovering/Resolving]
  - Sciatica [Recovered/Resolved]
  - Hypotension [Recovering/Resolving]

NARRATIVE: CASE EVENT DATE: 20190825
